FAERS Safety Report 6802022-X (Version None)
Quarter: 2010Q2

REPORT INFORMATION
  Report Type: 
  Country: None (occurrence: None)
  Receive Date: 20100629
  Receipt Date: 20071024
  Transmission Date: 20101027
  Serious: Yes (Hospitalization, Other)
  Sender: FDA-Public Use
  Company Number: US-PFIZER INC-2006118925

PATIENT
  Sex: Female
  Weight: 68 kg

DRUGS (8)
  1. BEXTRA [Suspect]
     Indication: PAIN
     Dates: start: 20020101, end: 20020601
  2. CELEBREX [Suspect]
     Dates: start: 20020327, end: 20020404
  3. VIOXX [Suspect]
     Indication: OSTEOARTHRITIS
     Dates: start: 20000601, end: 20040930
  4. VIOXX [Suspect]
     Indication: CARPAL TUNNEL SYNDROME
  5. VIOXX [Suspect]
     Indication: FIBROMYALGIA
  6. ACETYLSALICYLIC ACID [Concomitant]
     Dates: start: 20020101
  7. TOPROL-XL [Concomitant]
     Dates: start: 20030101, end: 20050101
  8. LIPITOR [Concomitant]
     Indication: BLOOD CHOLESTEROL INCREASED
     Dates: start: 20041027, end: 20070131

REACTIONS (1)
  - MYOCARDIAL INFARCTION [None]
